FAERS Safety Report 5579455-5 (Version None)
Quarter: 2007Q4

REPORT INFORMATION
  Report Type: 
  Country: None (occurrence: None)
  Receive Date: 20071130
  Receipt Date: 20070712
  Transmission Date: 20080405
  Serious: No
  Sender: FDA-Public Use
  Company Number: US200707003117

PATIENT
  Age: 69 Year
  Sex: Male

DRUGS (19)
  1. BYETTA [Suspect]
     Indication: TYPE 2 DIABETES MELLITUS
     Dosage: 5 UG, 2/D, SUBCUTANEOUS ; 10 UG, 2/D, SUBCUTANEOUS
     Route: 058
     Dates: start: 20070321, end: 20070401
  2. BYETTA [Suspect]
     Indication: TYPE 2 DIABETES MELLITUS
     Dosage: 5 UG, 2/D, SUBCUTANEOUS ; 10 UG, 2/D, SUBCUTANEOUS
     Route: 058
     Dates: start: 20070401
  3. METFORMIN HCL [Concomitant]
  4. ACTOS [Concomitant]
  5. AMARYL [Concomitant]
  6. PROTONIX [Concomitant]
  7. LIPITOR [Concomitant]
  8. LOTREL [Concomitant]
  9. EFFEXOR [Concomitant]
  10. FOCALIN [Concomitant]
  11. TEMAZEPAM [Concomitant]
  12. LITHIUM CARBONATE [Concomitant]
  13. DOXEPIN HCL [Concomitant]
  14. LEVITRA [Concomitant]
  15. ASPIRIN [Concomitant]
  16. MULTIVITAMIN [Concomitant]
  17. FISH OIL (FISH OIL) [Concomitant]
  18. GLUCOSAMINE (GLUCOSAMINE) [Concomitant]
  19. CHONDROITIN (CHONDROITIN) [Concomitant]

REACTIONS (3)
  - ARTHRALGIA [None]
  - NODULE [None]
  - OEDEMA PERIPHERAL [None]
